FAERS Safety Report 9279023 (Version 2)
Quarter: 2013Q2

REPORT INFORMATION
  Report Type: Report from Study
  Country: CA (occurrence: CA)
  Receive Date: 20130508
  Receipt Date: 20130627
  Transmission Date: 20140414
  Serious: Yes (Other)
  Sender: FDA-Public Use
  Company Number: CA-JNJFOC-20130503824

PATIENT
  Sex: Female
  Weight: 99.79 kg

DRUGS (4)
  1. SIMPONI [Suspect]
     Indication: PSORIASIS
     Route: 058
     Dates: end: 201303
  2. SIMPONI [Suspect]
     Indication: PSORIASIS
     Route: 058
     Dates: end: 201301
  3. SALAZOPYRIN [Concomitant]
     Route: 048
  4. CORTISONE [Concomitant]

REACTIONS (2)
  - Dermatitis allergic [Unknown]
  - Influenza [Unknown]
